FAERS Safety Report 4463402-3 (Version None)
Quarter: 2004Q3

REPORT INFORMATION
  Report Type: 
  Country: None (occurrence: None)
  Receive Date: 20040928
  Receipt Date: 20040917
  Transmission Date: 20050211
  Serious: Yes (Hospitalization)
  Sender: FDA-Public Use
  Company Number: KII-2004-0013384

PATIENT
  Age: 31 Year
  Sex: Male

DRUGS (2)
  1. OXYCONTIN [Suspect]
     Indication: PAIN
     Dosage: ORAL
     Route: 048
  2. UNKNOWN [Concomitant]

REACTIONS (4)
  - DEPRESSED LEVEL OF CONSCIOUSNESS [None]
  - DRUG INEFFECTIVE [None]
  - MEDICATION ERROR [None]
  - RESPIRATORY DEPRESSION [None]
